FAERS Safety Report 7973218-9 (Version None)
Quarter: 2011Q4

REPORT INFORMATION
  Report Type: 
  Country: None (occurrence: None)
  Receive Date: 20111213
  Receipt Date: 20111202
  Transmission Date: 20120403
  Serious: Yes (Hospitalization)
  Sender: FDA-Public Use
  Company Number: PHEH2011US010782

PATIENT
  Sex: Male

DRUGS (2)
  1. TASIGNA [Suspect]
     Dosage: UNK UKN, UNK
  2. DRUG THERAPY NOS [Suspect]

REACTIONS (12)
  - DIARRHOEA [None]
  - MALAISE [None]
  - CARDIAC DISORDER [None]
  - ADRENAL DISORDER [None]
  - BLOOD URINE PRESENT [None]
  - DYSPEPSIA [None]
  - OEDEMA PERIPHERAL [None]
  - BLOOD PRESSURE INCREASED [None]
  - HAEMATOCHEZIA [None]
  - CHEST PAIN [None]
  - NAUSEA [None]
  - VOMITING [None]
